FAERS Safety Report 6240381-X (Version None)
Quarter: 2009Q2

REPORT INFORMATION
  Report Type: 
  Country: None (occurrence: None)
  Receive Date: 20090623
  Receipt Date: 20080609
  Transmission Date: 20091009
  Serious: No
  Sender: FDA-Public Use
  Company Number: US-ASTRAZENECA-2008UW11527

PATIENT
  Age: 65 Year
  Sex: Female
  Weight: 54.4 kg

DRUGS (5)
  1. PULMICORT FLEXHALER [Suspect]
     Indication: ASTHMA
     Route: 055
     Dates: start: 20080513
  2. SEREVENT [Concomitant]
  3. INSULIN [Concomitant]
  4. MANY OTC VITAMINS [Concomitant]
  5. SUPPLEMENTS [Concomitant]

REACTIONS (5)
  - EPISTAXIS [None]
  - GINGIVAL BLEEDING [None]
  - GINGIVAL SWELLING [None]
  - INFECTION [None]
  - POSTNASAL DRIP [None]
